FAERS Safety Report 4585459-1 (Version None)
Quarter: 2005Q1

REPORT INFORMATION
  Report Type: 
  Country: None (occurrence: None)
  Receive Date: 20050217
  Receipt Date: 20050207
  Transmission Date: 20050727
  Serious: Yes (Disabling)
  Sender: FDA-Public Use
  Company Number: DE-AMGEN-UK112828

PATIENT
  Sex: Male

DRUGS (3)
  1. KINERET [Suspect]
     Indication: RHEUMATOID ARTHRITIS
     Route: 058
     Dates: start: 20030601, end: 20030801
  2. INFLIXIMAB [Suspect]
     Dates: start: 20030201, end: 20030401
  3. ADALIMUMAB [Concomitant]
     Dates: end: 20040801

REACTIONS (1)
  - JOINT STIFFNESS [None]
